FAERS Safety Report 8486956-9 (Version None)
Quarter: 2012Q3

REPORT INFORMATION
  Report Type: 
  Country: None (occurrence: None)
  Receive Date: 20120704
  Receipt Date: 20120627
  Transmission Date: 20120928
  Serious: Yes (Other)
  Sender: FDA-Public Use
  Company Number: US-AMGEN-USASP2011027192

PATIENT
  Age: 56 Year
  Sex: Male
  Weight: 65.76 kg

DRUGS (4)
  1. RIBAVIRIN [Suspect]
     Indication: HEPATITIS C
     Dosage: 1200 MG, QD
     Dates: start: 20101126
  2. RIBAVIRIN [Suspect]
     Dosage: 1000 MG, QD
  3. NEUPOGEN [Suspect]
     Indication: WHITE BLOOD CELL COUNT DECREASED
     Dosage: UNK UNK, 2 TIMES/WK
     Dates: start: 20110429
  4. PEGINTERFERON ALFA-2A [Suspect]
     Indication: HEPATITIS C
     Dosage: 180 MUG, QWK
     Dates: start: 20101126

REACTIONS (15)
  - AFFECT LABILITY [None]
  - FATIGUE [None]
  - ASTHENIA [None]
  - RASH [None]
  - DIZZINESS [None]
  - HAEMOGLOBIN DECREASED [None]
  - CHEST DISCOMFORT [None]
  - HEART RATE INCREASED [None]
  - DRUG DOSE OMISSION [None]
  - WHITE BLOOD CELL COUNT DECREASED [None]
  - HEADACHE [None]
  - DECREASED ACTIVITY [None]
  - FULL BLOOD COUNT DECREASED [None]
  - DYSPNOEA [None]
  - MUSCULOSKELETAL PAIN [None]
